FAERS Safety Report 17010757 (Version 2)
Quarter: 2019Q4

REPORT INFORMATION
  Report Type: Spontaneous
  Country: US (occurrence: US)
  Receive Date: 20191108
  Receipt Date: 20191219
  Transmission Date: 20200122
  Serious: No
  Sender: FDA-Public Use
  Company Number: US-SA-2019SA304263

PATIENT
  Age: 29 Year
  Sex: Female

DRUGS (3)
  1. DUPIXENT [Suspect]
     Active Substance: DUPILUMAB
     Indication: ECZEMA
     Dosage: 300 UNK
     Route: 058
     Dates: start: 20190930
  2. DUPIXENT [Suspect]
     Active Substance: DUPILUMAB
     Indication: DERMATITIS ATOPIC
     Dosage: 600 MG, 1X
     Route: 058
     Dates: start: 20190916, end: 20190916
  3. RESTASIS [Concomitant]
     Active Substance: CYCLOSPORINE
     Indication: DRY EYE

REACTIONS (5)
  - Superficial injury of eye [Unknown]
  - Dry eye [Recovered/Resolved]
  - Ocular discomfort [Unknown]
  - Eye disorder [Unknown]
  - Eye pruritus [Unknown]

NARRATIVE: CASE EVENT DATE: 2019
